FAERS Safety Report 6737627-8 (Version None)
Quarter: 2010Q2

REPORT INFORMATION
  Report Type: 
  Country: None (occurrence: None)
  Receive Date: 20100519
  Receipt Date: 20100504
  Transmission Date: 20101027
  Serious: Yes (Other)
  Sender: FDA-Public Use
  Company Number: DE-1181232

PATIENT
  Sex: Female

DRUGS (4)
  1. IOPIDINE [Suspect]
     Indication: GLAUCOMA
     Dosage: TID OPHTHALMIC
     Route: 047
     Dates: end: 20100401
  2. NOVOTHYRAL [Concomitant]
  3. CETIRIZINE HCL [Concomitant]
  4. POTASSIUM IODIDE [Concomitant]

REACTIONS (6)
  - DRUG INEFFECTIVE [None]
  - EYE IRRITATION [None]
  - EYE PRURITUS [None]
  - MIGRAINE [None]
  - PRODUCT QUALITY ISSUE [None]
  - VISUAL ACUITY REDUCED [None]
